FAERS Safety Report 5400704-8 (Version None)
Quarter: 2007Q3

REPORT INFORMATION
  Report Type: 
  Country: None (occurrence: None)
  Receive Date: 20070730
  Receipt Date: 20070718
  Transmission Date: 20080115
  Serious: Yes (Life-Threatening, Other)
  Sender: FDA-Public Use
  Company Number: JP-PFIZER INC-2007050320

PATIENT
  Age: 70 Year
  Sex: Female

DRUGS (6)
  1. ZITHROMAC [Suspect]
     Indication: GINGIVAL ABSCESS
     Dosage: DAILY DOSE:500MG
     Route: 048
     Dates: start: 20070423, end: 20070424
  2. FLUCAM [Concomitant]
  3. LOXONIN [Concomitant]
  4. VOLTAREN [Concomitant]
  5. MACROLIDES [Concomitant]
  6. VOLTAREN [Concomitant]

REACTIONS (11)
  - DYSPNOEA [None]
  - GLOSSODYNIA [None]
  - HEADACHE [None]
  - HYPOAESTHESIA [None]
  - HYPOAESTHESIA ORAL [None]
  - MALAISE [None]
  - NAUSEA [None]
  - ORAL PAIN [None]
  - PAIN [None]
  - PALPITATIONS [None]
  - TREMOR [None]
